FAERS Safety Report 8516820-8 (Version None)
Quarter: 2012Q3

REPORT INFORMATION
  Report Type: 
  Country: None (occurrence: None)
  Receive Date: 20120718
  Receipt Date: 20120704
  Transmission Date: 20120928
  Serious: Yes (Hospitalization)
  Sender: FDA-Public Use
  Company Number: US-MYLANLABS-2012S1013581

PATIENT
  Age: 77 Year
  Sex: Female

DRUGS (2)
  1. TACROLIMUS [Suspect]
     Route: 065
  2. CYCLOSPORINE [Concomitant]
     Route: 065

REACTIONS (3)
  - DIARRHOEA [None]
  - PNEUMONIA HERPES VIRAL [None]
  - ORGANISING PNEUMONIA [None]
